FAERS Safety Report 14448907 (Version 2)
Quarter: 2018Q1

REPORT INFORMATION
  Report Type: Spontaneous
  Country: IN (occurrence: IN)
  Receive Date: 20180126
  Receipt Date: 20180305
  Transmission Date: 20180509
  Serious: Yes (Life-Threatening)
  Sender: FDA-Public Use
  Company Number: IN-GE HEALTHCARE LIFE SCIENCES-2018CSU000363

PATIENT

DRUGS (1)
  1. OMNIPAQUE [Suspect]
     Active Substance: IOHEXOL
     Indication: PRODUCT USED FOR UNKNOWN INDICATION
     Dosage: 70 ML, SINGLE
     Route: 042
     Dates: start: 20180121, end: 20180121

REACTIONS (3)
  - Rash [Recovered/Resolved with Sequelae]
  - Dyspnoea [Recovered/Resolved with Sequelae]
  - Ocular hyperaemia [Recovered/Resolved with Sequelae]

NARRATIVE: CASE EVENT DATE: 20180121
